FAERS Safety Report 19449095 (Version 2)
Quarter: 2021Q3

REPORT INFORMATION
  Report Type: Spontaneous
  Country: US (occurrence: US)
  Receive Date: 20210622
  Receipt Date: 20210803
  Transmission Date: 20211014
  Serious: Yes (Other)
  Sender: FDA-Public Use
  Company Number: US-ASTRAZENECA-2021A527905

PATIENT
  Sex: Female
  Weight: 88.5 kg

DRUGS (4)
  1. BYDUREON BCISE [Suspect]
     Active Substance: EXENATIDE
     Indication: TYPE 2 DIABETES MELLITUS
     Route: 058
     Dates: start: 201804
  2. HUMALOG [Concomitant]
     Active Substance: INSULIN LISPRO
     Dosage: 14 UNITS BEFORE EVERY MEAL
  3. TOUJEO [Concomitant]
     Active Substance: INSULIN GLARGINE
     Dosage: 48 UNITS EVERY EVENING
  4. REPATHA [Concomitant]
     Active Substance: EVOLOCUMAB
     Dosage: REPATHA 140 MG/ML ONCE BIWEEKLY
     Route: 058

REACTIONS (4)
  - Breast cancer [Recovered/Resolved]
  - Device malfunction [Unknown]
  - Product dose omission issue [Unknown]
  - Device leakage [Unknown]

NARRATIVE: CASE EVENT DATE: 20200705
